FAERS Safety Report 17442781 (Version 1)
Quarter: 2020Q1

REPORT INFORMATION
  Report Type: Spontaneous
  Country: JP (occurrence: JP)
  Receive Date: 20200220
  Receipt Date: 20200220
  Transmission Date: 20200409
  Serious: Yes (Other)
  Sender: FDA-Public Use
  Company Number: JP-SUN PHARMACEUTICAL INDUSTRIES LTD-2020RR-237456

PATIENT
  Age: 54 Year
  Sex: Female

DRUGS (3)
  1. PREDNISOLONE. [Suspect]
     Active Substance: PREDNISOLONE
     Indication: COLITIS
     Dosage: 0.5 MILLIGRAM/KILOGRAMS, DAILY
     Route: 065
  2. MESALAZINE [Suspect]
     Active Substance: MESALAMINE
     Indication: COLITIS
     Dosage: 4800 MILLIGRAMS, DAILY
     Route: 065
  3. MERACAPTOPURINE [Suspect]
     Active Substance: MERCAPTOPURINE
     Indication: COLITIS
     Dosage: 30 MILLIGRAMS, DAILY
     Route: 065

REACTIONS (1)
  - Listeriosis [Unknown]
